FAERS Safety Report 9161490 (Version 6)
Quarter: 2013Q4

REPORT INFORMATION
  Report Type: Spontaneous
  Country: US (occurrence: US)
  Receive Date: 20130313
  Receipt Date: 20131016
  Transmission Date: 20140711
  Serious: Yes (Hospitalization)
  Sender: FDA-Public Use
  Company Number: US-009507513-1303USA004170

PATIENT
  Sex: Female
  Weight: 138 kg

DRUGS (1)
  1. NUVARING [Suspect]
     Indication: CONTRACEPTION
     Dosage: UNK
     Route: 067
     Dates: start: 20110630, end: 201110

REACTIONS (14)
  - Vena cava filter insertion [Unknown]
  - Deep vein thrombosis [Not Recovered/Not Resolved]
  - Angioplasty [Unknown]
  - Venous stent insertion [Unknown]
  - Nausea [Unknown]
  - Breast tenderness [Unknown]
  - Iron deficiency anaemia [Unknown]
  - Leukocytosis [Unknown]
  - Deep vein thrombosis [Unknown]
  - Blood pressure decreased [Unknown]
  - Thrombectomy [Unknown]
  - Antiphospholipid antibodies positive [Unknown]
  - Medical device removal [Unknown]
  - Synovial cyst [Unknown]
